FAERS Safety Report 8229582-9 (Version None)
Quarter: 2012Q1

REPORT INFORMATION
  Report Type: 
  Country: None (occurrence: None)
  Receive Date: 20120322
  Receipt Date: 20120220
  Transmission Date: 20120608
  Serious: Yes (Hospitalization)
  Sender: FDA-Public Use
  Company Number: US-ROCHE-796282

PATIENT
  Sex: Female
  Weight: 69.9 kg

DRUGS (6)
  1. HYDROCHLOROTHIAZIDE [Concomitant]
  2. NEURONTIN [Concomitant]
  3. SYNTHROID [Concomitant]
  4. ACTEMRA [Suspect]
     Indication: RHEUMATOID ARTHRITIS
     Route: 042
     Dates: start: 20110419, end: 20110517
  5. SIMVASTATIN [Concomitant]
  6. ENBREL [Concomitant]

REACTIONS (10)
  - NECK PAIN [None]
  - VERTIGO [None]
  - LETHARGY [None]
  - BLOOD PRESSURE INCREASED [None]
  - DYSPNOEA [None]
  - FATIGUE [None]
  - PARAESTHESIA ORAL [None]
  - CEREBROVASCULAR ACCIDENT [None]
  - FEELING HOT [None]
  - DYSARTHRIA [None]
